FAERS Safety Report 15316346 (Version 1)
Quarter: 2018Q3

REPORT INFORMATION
  Report Type: Spontaneous
  Country: US (occurrence: US)
  Receive Date: 20180824
  Receipt Date: 20180824
  Transmission Date: 20181010
  Serious: No
  Sender: FDA-Public Use
  Company Number: US-UGNX-E2B_00000111

PATIENT
  Sex: Male

DRUGS (1)
  1. CRYSVITA [Suspect]
     Active Substance: BUROSUMAB-TWZA
     Indication: PRODUCT USED FOR UNKNOWN INDICATION
     Dosage: 10 MG, EVERY 4 WEEKS
     Route: 058
     Dates: start: 20180620

REACTIONS (2)
  - Inappropriate schedule of drug administration [Unknown]
  - Pyrexia [Unknown]
